FAERS Safety Report 9594744 (Version 1)
Quarter: 2013Q4

REPORT INFORMATION
  Report Type: Spontaneous
  Country: US (occurrence: US)
  Receive Date: 20131004
  Receipt Date: 20131004
  Transmission Date: 20140711
  Serious: Yes (Other)
  Sender: FDA-Public Use
  Company Number: US-NAPPMUNDI-USA-2012-0091596

PATIENT
  Age: 69 Year
  Sex: Female

DRUGS (1)
  1. BUTRANS [Suspect]
     Indication: PRODUCT USED FOR UNKNOWN INDICATION
     Route: 062

REACTIONS (6)
  - Hallucination [Unknown]
  - Dysuria [Unknown]
  - Hypopnoea [Unknown]
  - Application site pruritus [Unknown]
  - Application site pain [Unknown]
  - Diarrhoea [Unknown]
